FAERS Safety Report 8623314-8 (Version None)
Quarter: 2012Q3

REPORT INFORMATION
  Report Type: 
  Country: None (occurrence: None)
  Receive Date: 20120827
  Receipt Date: 20120823
  Transmission Date: 20120928
  Serious: Yes (Death)
  Sender: FDA-Public Use
  Company Number: PHHY2012MX073649

PATIENT
  Sex: Male

DRUGS (2)
  1. EXFORGE [Suspect]
     Dosage: 320/5 MG, UNK
  2. RASILEZ [Suspect]
     Indication: HYPERTENSION
     Dosage: 300 MG, UNK

REACTIONS (1)
  - DEATH [None]
